FAERS Safety Report 5798448-6 (Version None)
Quarter: 2008Q2

REPORT INFORMATION
  Report Type: 
  Country: None (occurrence: None)
  Receive Date: 20080630
  Receipt Date: 20080619
  Transmission Date: 20081010
  Serious: Yes (Other)
  Sender: FDA-Public Use
  Company Number: 2008AP000276

PATIENT
  Age: 30 Year
  Sex: Male

DRUGS (11)
  1. PAROXETINE HCL [Suspect]
     Indication: DRUG USE FOR UNKNOWN INDICATION
     Dosage: 37 MG, QD; PO, 20 MG, QD; PO, 60 MG, QD; PO, 50 MG, QD; PO, PO, SYR, QD, PO, 20 MG, QD
     Route: 048
     Dates: start: 20030717, end: 20040827
  2. PAROXETINE HCL [Suspect]
     Indication: DRUG USE FOR UNKNOWN INDICATION
     Dosage: 37 MG, QD; PO, 20 MG, QD; PO, 60 MG, QD; PO, 50 MG, QD; PO, PO, SYR, QD, PO, 20 MG, QD
     Route: 048
     Dates: start: 20001120
  3. PAROXETINE HCL [Suspect]
     Indication: DRUG USE FOR UNKNOWN INDICATION
     Dosage: 37 MG, QD; PO, 20 MG, QD; PO, 60 MG, QD; PO, 50 MG, QD; PO, PO, SYR, QD, PO, 20 MG, QD
     Route: 048
     Dates: start: 20001120
  4. PAROXETINE HCL [Suspect]
     Indication: DRUG USE FOR UNKNOWN INDICATION
     Dosage: 37 MG, QD; PO, 20 MG, QD; PO, 60 MG, QD; PO, 50 MG, QD; PO, PO, SYR, QD, PO, 20 MG, QD
     Route: 048
     Dates: start: 20010601
  5. PAROXETINE HCL [Suspect]
     Indication: DRUG USE FOR UNKNOWN INDICATION
     Dosage: 37 MG, QD; PO, 20 MG, QD; PO, 60 MG, QD; PO, 50 MG, QD; PO, PO, SYR, QD, PO, 20 MG, QD
     Route: 048
     Dates: start: 20020117
  6. PAROXETINE HCL [Suspect]
     Indication: DRUG USE FOR UNKNOWN INDICATION
     Dosage: 37 MG, QD; PO, 20 MG, QD; PO, 60 MG, QD; PO, 50 MG, QD; PO, PO, SYR, QD, PO, 20 MG, QD
     Route: 048
     Dates: start: 20020221
  7. PAROXETINE HCL [Suspect]
     Indication: DRUG USE FOR UNKNOWN INDICATION
     Dosage: 37 MG, QD; PO, 20 MG, QD; PO, 60 MG, QD; PO, 50 MG, QD; PO, PO, SYR, QD, PO, 20 MG, QD
     Route: 048
     Dates: start: 20031010
  8. PAROXETINE HCL [Suspect]
     Indication: DRUG USE FOR UNKNOWN INDICATION
     Dosage: 37 MG, QD; PO, 20 MG, QD; PO, 60 MG, QD; PO, 50 MG, QD; PO, PO, SYR, QD, PO, 20 MG, QD
     Route: 048
     Dates: start: 20040827
  9. DOSULEPIN (DOSULEPIN) [Concomitant]
  10. FLUOXETINE HCL [Concomitant]
  11. REBOXETINE (REBOXETINE) [Concomitant]

REACTIONS (27)
  - ABDOMINAL DISTENSION [None]
  - ABNORMAL DREAMS [None]
  - ACNE [None]
  - AGGRESSION [None]
  - COGNITIVE DISORDER [None]
  - COORDINATION ABNORMAL [None]
  - DEPENDENCE [None]
  - DISTURBANCE IN ATTENTION [None]
  - DRUG DEPENDENCE [None]
  - DRUG INEFFECTIVE [None]
  - DRUG WITHDRAWAL SYNDROME [None]
  - EYE PAIN [None]
  - FLIGHT OF IDEAS [None]
  - FUNGAL INFECTION [None]
  - HOSTILITY [None]
  - HYPERSOMNIA [None]
  - ILL-DEFINED DISORDER [None]
  - IMPULSIVE BEHAVIOUR [None]
  - MIGRAINE [None]
  - MOOD ALTERED [None]
  - MOOD SWINGS [None]
  - PANIC ATTACK [None]
  - PANIC REACTION [None]
  - PARANOIA [None]
  - SUICIDAL IDEATION [None]
  - THINKING ABNORMAL [None]
  - WEIGHT DECREASED [None]
